FAERS Safety Report 18466993 (Version 1)
Quarter: 2020Q4

REPORT INFORMATION
  Report Type: Spontaneous
  Country: US (occurrence: US)
  Receive Date: 20201104
  Receipt Date: 20201104
  Transmission Date: 20210114
  Serious: No
  Sender: FDA-Public Use
  Company Number: None

PATIENT
  Age: 52 Year
  Sex: Male
  Weight: 77.56 kg

DRUGS (1)
  1. GABAPENTIN (GABAPENTIN 100MG CAP) [Suspect]
     Active Substance: GABAPENTIN
     Route: 048
     Dates: start: 20200622, end: 20200715

REACTIONS (3)
  - Tachycardia [None]
  - Headache [None]
  - Dizziness [None]

NARRATIVE: CASE EVENT DATE: 20200715
